FAERS Safety Report 19248497 (Version 1)
Quarter: 2021Q2

REPORT INFORMATION
  Report Type: Spontaneous
  Country: US (occurrence: US)
  Receive Date: 20210512
  Receipt Date: 20210512
  Transmission Date: 20210717
  Serious: No
  Sender: FDA-Public Use
  Company Number: US-BEH-2021131497

PATIENT
  Age: 9 Year
  Sex: Female

DRUGS (2)
  1. HIZENTRA [Suspect]
     Active Substance: HUMAN IMMUNOGLOBULIN G
     Indication: HYPOGAMMAGLOBULINAEMIA
     Dosage: 3 GRAM, QW
     Route: 058
     Dates: start: 202103
  2. HIZENTRA [Suspect]
     Active Substance: HUMAN IMMUNOGLOBULIN G
     Indication: IMMUNODEFICIENCY COMMON VARIABLE
     Dosage: 3 GRAM, TOT
     Route: 058
     Dates: start: 20210423, end: 20210423

REACTIONS (6)
  - Rash macular [Unknown]
  - Infusion site rash [Unknown]
  - Infusion site urticaria [Unknown]
  - Head discomfort [Unknown]
  - Infusion site vesicles [Unknown]
  - Nasal congestion [Unknown]

NARRATIVE: CASE EVENT DATE: 20210423
